FAERS Safety Report 8509566-3 (Version None)
Quarter: 2012Q3

REPORT INFORMATION
  Report Type: 
  Country: None (occurrence: None)
  Receive Date: 20120703
  Receipt Date: 20120703
  Transmission Date: 20120928
  Serious: Yes (Other)
  Sender: FDA-Public Use
  Company Number: None

PATIENT
  Sex: Female
  Weight: 25.7 kg

DRUGS (18)
  1. DAPSONE [Concomitant]
  2. GENTAMICIN [Concomitant]
  3. CEFEPIME [Concomitant]
  4. DIPHENHYDRAMINE HCL [Concomitant]
  5. DOCUSATE [Concomitant]
  6. MULTI-VITAMIN [Concomitant]
  7. DEXTROSE AND NACL INFUSION [Concomitant]
  8. HYDROMORPHONE HCL [Concomitant]
  9. ONDANSETRON [Concomitant]
  10. ALLOPURINOL [Concomitant]
  11. RANITIDINE [Concomitant]
  12. ACETAMINOPHEN [Concomitant]
  13. HYDROCORTISONE [Concomitant]
  14. VORICONAZOLE [Concomitant]
  15. DEXAMETHASONE [Concomitant]
  16. ACYCLOVIR [Concomitant]
  17. VANCOMYCIN [Concomitant]
  18. BLINATUMOMAB; MANUFACTURED BY AMGEN [Suspect]
     Indication: ACUTE LYMPHOCYTIC LEUKAEMIA
     Dosage: 15MCG/DAY/M2/IV
     Route: 042
     Dates: start: 20120625

REACTIONS (2)
  - INCORRECT DOSE ADMINISTERED [None]
  - CEREBELLAR ATAXIA [None]
